FAERS Safety Report 7903260-5 (Version None)
Quarter: 2011Q4

REPORT INFORMATION
  Report Type: 
  Country: None (occurrence: None)
  Receive Date: 20111109
  Receipt Date: 20111102
  Transmission Date: 20120403
  Serious: Yes (Other)
  Sender: FDA-Public Use
  Company Number: NL-JNJFOC-20111101238

PATIENT
  Sex: Male

DRUGS (3)
  1. MICONAZOLE [Suspect]
     Indication: PRODUCT USED FOR UNKNOWN INDICATION
     Route: 061
  2. MICONAZOLE [Suspect]
     Route: 061
  3. EZETIMIBE [Interacting]
     Indication: PRODUCT USED FOR UNKNOWN INDICATION
     Route: 065

REACTIONS (2)
  - SYNCOPE [None]
  - DRUG INTERACTION [None]
